FAERS Safety Report 8203915-1 (Version None)
Quarter: 2012Q1

REPORT INFORMATION
  Report Type: 
  Country: None (occurrence: None)
  Receive Date: 20120313
  Receipt Date: 20120308
  Transmission Date: 20120608
  Serious: Yes (Other)
  Sender: FDA-Public Use
  Company Number: US-BAYER-2012-023032

PATIENT
  Age: 24 Year
  Sex: Female

DRUGS (2)
  1. DROSPIRENONE AND ETHINYL ESTRADIOL [Suspect]
     Indication: PRODUCT USED FOR UNKNOWN INDICATION
     Dosage: UNK
     Dates: start: 20090101, end: 20100101
  2. YASMIN [Suspect]
     Indication: PRODUCT USED FOR UNKNOWN INDICATION
     Dosage: UNK
     Dates: start: 20030901, end: 20090101

REACTIONS (6)
  - INJURY [None]
  - DEPRESSION [None]
  - NERVOUSNESS [None]
  - EMOTIONAL DISTRESS [None]
  - CHOLECYSTECTOMY [None]
  - FEAR OF DEATH [None]
